FAERS Safety Report 10873183 (Version 4)
Quarter: 2015Q3

REPORT INFORMATION
  Report Type: Report from Study
  Country: CL (occurrence: CL)
  Receive Date: 20150227
  Receipt Date: 20150724
  Transmission Date: 20151125
  Serious: Yes (Other)
  Sender: FDA-Public Use
  Company Number: CL-ROCHE-1543995

PATIENT
  Age: 65 Year
  Sex: Male
  Weight: 73 kg

DRUGS (2)
  1. XELODA [Suspect]
     Active Substance: CAPECITABINE
     Indication: GASTRIC CANCER
     Dosage: 21 DAYS PER CYCLE
     Route: 048
     Dates: start: 20141211
  2. XELODA [Suspect]
     Active Substance: CAPECITABINE
     Dosage: DAILY
     Route: 048
     Dates: start: 20150605

REACTIONS (9)
  - Parosmia [Recovered/Resolved]
  - Asthenia [Recovered/Resolved]
  - Nausea [Recovered/Resolved]
  - Feeling hot [Unknown]
  - Weight decreased [Not Recovered/Not Resolved]
  - Pollakiuria [Not Recovered/Not Resolved]
  - Diarrhoea [Recovered/Resolved]
  - Bone pain [Unknown]
  - Pain [Not Recovered/Not Resolved]
